FAERS Safety Report 11318992 (Version 2)
Quarter: 2015Q3

REPORT INFORMATION
  Report Type: Spontaneous
  Country: US (occurrence: US)
  Receive Date: 20150729
  Receipt Date: 20150824
  Transmission Date: 20151125
  Serious: No
  Sender: FDA-Public Use
  Company Number: US-ACTELION PHARMACEUTICALS US, INC.-A-NJ2015-120507

PATIENT
  Age: 69 Year
  Sex: Female

DRUGS (2)
  1. OPSUMIT [Suspect]
     Active Substance: MACITENTAN
     Indication: PULMONARY ARTERIAL HYPERTENSION
     Dosage: 10 MG, QD
     Route: 048
     Dates: start: 20150317
  2. ADCIRCA [Concomitant]
     Active Substance: TADALAFIL

REACTIONS (13)
  - Dyspnoea [Unknown]
  - Pain [Unknown]
  - Hot flush [Unknown]
  - Chest pain [Unknown]
  - Mouth breathing [Unknown]
  - Chest discomfort [Unknown]
  - Dyspnoea exertional [Unknown]
  - Condition aggravated [Unknown]
  - Abdominal discomfort [Unknown]
  - Nausea [Unknown]
  - Dry mouth [Unknown]
  - Oxygen saturation decreased [Unknown]
  - Nasal congestion [Unknown]

NARRATIVE: CASE EVENT DATE: 20150627
